FAERS Safety Report 24464813 (Version 1)
Quarter: 2024Q4

REPORT INFORMATION
  Report Type: Report from Study
  Country: US (occurrence: US)
  Receive Date: 20241018
  Receipt Date: 20241018
  Transmission Date: 20250114
  Serious: No
  Sender: ROCHE
  Company Number: US-ROCHE-3500864

PATIENT
  Age: 36 Year
  Sex: Female

DRUGS (7)
  1. XOLAIR [Suspect]
     Active Substance: OMALIZUMAB
     Indication: Urticaria
     Route: 058
  2. XOLAIR [Suspect]
     Active Substance: OMALIZUMAB
  3. OMALIZUMAB [Concomitant]
     Active Substance: OMALIZUMAB
  4. EPINEPHRINE [Concomitant]
     Active Substance: EPINEPHRINE
  5. FERROUS SULFATE [Concomitant]
     Active Substance: FERROUS SULFATE
  6. MONTELUKAST [Concomitant]
     Active Substance: MONTELUKAST
  7. PREDNISONE [Concomitant]
     Active Substance: PREDNISONE

REACTIONS (2)
  - Off label use [Unknown]
  - No adverse event [Unknown]
